FAERS Safety Report 12315929 (Version 2)
Quarter: 2016Q2

REPORT INFORMATION
  Report Type: Report from Study
  Country: AR (occurrence: AR)
  Receive Date: 20160428
  Receipt Date: 20160621
  Transmission Date: 20160815
  Serious: Yes (Hospitalization, Other)
  Sender: FDA-Public Use
  Company Number: AR-BRISTOL-MYERS SQUIBB COMPANY-BMS-2016-013743

PATIENT
  Age: 51 Year
  Sex: Female

DRUGS (1)
  1. ABATACEPT [Suspect]
     Active Substance: ABATACEPT
     Indication: RHEUMATOID ARTHRITIS
     Dosage: UNK, QMO
     Route: 042
     Dates: start: 20141002, end: 20160308

REACTIONS (8)
  - Coma [Recovering/Resolving]
  - Osteomyelitis [Unknown]
  - Localised infection [Recovering/Resolving]
  - Vasculitis [Unknown]
  - Central nervous system infection [Unknown]
  - Nosocomial infection [Unknown]
  - Limb operation [Unknown]
  - Depression [Unknown]

NARRATIVE: CASE EVENT DATE: 20160202
